FAERS Safety Report 6875877-0 (Version None)
Quarter: 2010Q3

REPORT INFORMATION
  Report Type: 
  Country: None (occurrence: None)
  Receive Date: 20100727
  Receipt Date: 20070925
  Transmission Date: 20110219
  Serious: Yes (Death)
  Sender: FDA-Public Use
  Company Number: US-PFIZER INC-2006121962

PATIENT
  Sex: Male
  Weight: 81.6 kg

DRUGS (2)
  1. CELEBREX [Suspect]
     Indication: PAIN
     Route: 048
     Dates: start: 20010512, end: 20020223
  2. VIOXX [Suspect]
     Route: 048
     Dates: start: 20010310, end: 20010522

REACTIONS (1)
  - MYOCARDIAL INFARCTION [None]
